FAERS Safety Report 14015154 (Version 1)
Quarter: 2017Q3

REPORT INFORMATION
  Report Type: Spontaneous
  Country: US (occurrence: None)
  Receive Date: 20170927
  Receipt Date: 20170927
  Transmission Date: 20171128
  Serious: No
  Sender: FDA-Public Use
  Company Number: None

PATIENT
  Age: 76 Year
  Sex: Female
  Weight: 97.07 kg

DRUGS (4)
  1. VITAMIN D [Concomitant]
     Active Substance: CHOLECALCIFEROL
  2. TRESIBA [Suspect]
     Active Substance: INSULIN DEGLUDEC
     Indication: TYPE 2 DIABETES MELLITUS
     Dates: start: 20160928, end: 20170909
  3. NOVOLOG [Concomitant]
     Active Substance: INSULIN ASPART
  4. PHENERGAN [Concomitant]
     Active Substance: PROMETHAZINE HYDROCHLORIDE

REACTIONS (8)
  - Confusional state [None]
  - Arthralgia [None]
  - Myalgia [None]
  - Pain [None]
  - Depression [None]
  - Nausea [None]
  - Weight increased [None]
  - Insomnia [None]

NARRATIVE: CASE EVENT DATE: 20160928
